FAERS Safety Report 22225443 (Version 3)
Quarter: 2023Q2

REPORT INFORMATION
  Report Type: Report from Study
  Country: CA (occurrence: CA)
  Receive Date: 20230418
  Receipt Date: 20230509
  Transmission Date: 20230722
  Serious: Yes (Other)
  Sender: FDA-Public Use
  Company Number: CA-HLS-202300852

PATIENT
  Age: 52 Year
  Sex: Male

DRUGS (6)
  1. CLOZARIL [Suspect]
     Active Substance: CLOZAPINE
     Indication: Schizophrenia
     Route: 048
     Dates: start: 20100609, end: 20230330
  2. CLOZARIL [Suspect]
     Active Substance: CLOZAPINE
     Indication: Schizophrenia
     Dosage: 250 MG
     Route: 048
     Dates: end: 20230404
  3. EPIVAL [Concomitant]
     Active Substance: DIVALPROEX SODIUM
     Indication: Product used for unknown indication
     Dosage: 750 MG TWICE DAILY
     Route: 065
  4. FLUPENTIXOL [Concomitant]
     Active Substance: FLUPENTIXOL
     Indication: Product used for unknown indication
     Dosage: 100 MG INTRAMUSCULAR EVERY 14 DAYS
     Route: 065
  5. CLONAZEPAM [Concomitant]
     Active Substance: CLONAZEPAM
     Indication: Product used for unknown indication
     Dosage: 0.5MG TID
     Route: 065
  6. EFFEXOR XR [Concomitant]
     Active Substance: VENLAFAXINE HYDROCHLORIDE
     Indication: Product used for unknown indication
     Dosage: 75MG
     Route: 065

REACTIONS (4)
  - Neutrophil count decreased [Recovered/Resolved]
  - Lung neoplasm malignant [Unknown]
  - Sedation complication [Unknown]
  - White blood cell count decreased [Recovered/Resolved]

NARRATIVE: CASE EVENT DATE: 20230331
